FAERS Safety Report 25996056 (Version 2)
Quarter: 2025Q4

REPORT INFORMATION
  Report Type: Report from Study
  Country: US (occurrence: US)
  Receive Date: 20251104
  Receipt Date: 20251105
  Transmission Date: 20260118
  Serious: No
  Sender: BRISTOL-MYERS SQUIBB COMPANY
  Company Number: US-BRISTOL-MYERS SQUIBB COMPANY-2025-149564

PATIENT
  Age: 74 Year
  Sex: Female
  Weight: 54.43 kg

DRUGS (3)
  1. ELIQUIS [Suspect]
     Active Substance: APIXABAN
     Indication: Atrial fibrillation
     Route: 048
  2. TYLENOL [Concomitant]
     Active Substance: ACETAMINOPHEN
     Indication: Back pain
  3. TYLENOL [Concomitant]
     Active Substance: ACETAMINOPHEN
     Indication: Abdominal pain upper

REACTIONS (1)
  - Circumstance or information capable of leading to medication error [Unknown]

NARRATIVE: CASE EVENT DATE: 20251103
